FAERS Safety Report 9653317 (Version 7)
Quarter: 2014Q1

REPORT INFORMATION
  Report Type: Spontaneous
  Country: JP (occurrence: JP)
  Receive Date: 20131029
  Receipt Date: 20140225
  Transmission Date: 20141002
  Serious: Yes (Death, Hospitalization, Other)
  Sender: FDA-Public Use
  Company Number: JP-PFIZER INC-2013309442

PATIENT
  Age: 83 Year
  Sex: Female
  Weight: 42 kg

DRUGS (19)
  1. CELECOX [Suspect]
     Indication: LUNG NEOPLASM MALIGNANT
     Dosage: UNK
     Route: 048
     Dates: start: 20130927, end: 20131018
  2. GENINAX [Suspect]
     Indication: LUNG NEOPLASM MALIGNANT
     Dosage: 400 MG, 1X/DAY
     Route: 048
     Dates: start: 20131009, end: 20131018
  3. PRAZAXA [Suspect]
     Indication: ATRIAL FIBRILLATION
     Dosage: 110 MG, 2X/DAY
     Route: 048
     Dates: start: 20131004, end: 20131021
  4. FLOMOX [Suspect]
     Indication: LUNG NEOPLASM MALIGNANT
     Dosage: 100 MG, 3X/DAY
     Route: 048
     Dates: start: 20131005, end: 20131009
  5. ZOSYN [Suspect]
     Indication: INTERSTITIAL LUNG DISEASE
     Dosage: 4.5 MG, 2X/DAY
     Route: 065
     Dates: start: 20131018, end: 20131020
  6. FINIBAX [Suspect]
     Indication: INTERSTITIAL LUNG DISEASE
     Dosage: 0.25 G, 3X/DAY
     Route: 065
     Dates: start: 20131021, end: 20131030
  7. LASIX [Concomitant]
     Dosage: UNK
     Route: 048
     Dates: start: 20131009, end: 20131127
  8. CARDENALIN [Concomitant]
     Indication: HYPERTENSION
     Dosage: UNK
     Dates: end: 20131127
  9. BUFFERIN [Concomitant]
     Indication: CEREBRAL INFARCTION
     Dosage: UNK
     Dates: end: 20131021
  10. EBASTINE [Concomitant]
     Dosage: UNK
     Route: 065
     Dates: end: 20131018
  11. GASMOTIN [Concomitant]
     Dosage: UNK
     Route: 065
     Dates: end: 20131018
  12. BIODIASTASE 2000 [Concomitant]
     Dosage: UNK
     Dates: end: 20131018
  13. MEILAX [Concomitant]
     Dosage: UNK
     Dates: end: 20131018
  14. LIPIDIL [Concomitant]
     Indication: HYPERLIPIDAEMIA
     Dosage: UNK
     Dates: end: 20131018
  15. NITRODERM [Concomitant]
     Indication: MYOCARDIAL INFARCTION
     Dosage: UNK
     Dates: end: 20131018
  16. MOHRUS [Concomitant]
     Dosage: UNK
     Dates: end: 20131018
  17. LOXONIN [Concomitant]
     Dosage: UNK
     Dates: end: 20131018
  18. DIOVAN [Concomitant]
     Indication: HYPERTENSION
     Dosage: UNK
     Dates: end: 20131018
  19. SOLU MEDROL [Concomitant]
     Indication: INTERSTITIAL LUNG DISEASE
     Dosage: UNK
     Dates: start: 20131021, end: 20131023

REACTIONS (9)
  - Interstitial lung disease [Fatal]
  - Pseudomembranous colitis [Recovered/Resolved]
  - Urine output decreased [Unknown]
  - Oedema [Unknown]
  - Depressed level of consciousness [Unknown]
  - Hypercapnia [Unknown]
  - Platelet count decreased [Unknown]
  - Pulmonary alveolar haemorrhage [Unknown]
  - Eosinophilic pneumonia [Unknown]
